FAERS Safety Report 20752246 (Version 1)
Quarter: 2022Q2

REPORT INFORMATION
  Report Type: Spontaneous
  Country: US (occurrence: US)
  Receive Date: 20220426
  Receipt Date: 20220426
  Transmission Date: 20220721
  Serious: No
  Sender: FDA-Public Use
  Company Number: US-NOVARTISTESTPH-NVSC2022US095504

PATIENT
  Age: 44 Year
  Sex: Female

DRUGS (1)
  1. XIIDRA [Suspect]
     Active Substance: LIFITEGRAST
     Indication: Dry eye
     Dosage: UNK UNK, BID (1 GTT (DROP)
     Route: 047
     Dates: start: 20220301, end: 20220309

REACTIONS (2)
  - Eye irritation [Unknown]
  - Lacrimation increased [Unknown]
